FAERS Safety Report 8785769 (Version 2)
Quarter: 2012Q4

REPORT INFORMATION
  Report Type: 
  Country: US (occurrence: US)
  Receive Date: 20120914
  Receipt Date: 20121015
  Transmission Date: 20130627
  Serious: Yes (Hospitalization, Other)
  Sender: FDA-Public Use
  Company Number: US-CELGENEUS-163-20785-10070453

PATIENT
  Sex: Female

DRUGS (8)
  1. THALOMID [Suspect]
     Indication: MULTIPLE MYELOMA
     Dosage: 100 Milligram
     Route: 048
     Dates: start: 20100219, end: 20100513
  2. THALOMID [Suspect]
     Dosage: 100 Milligram
     Route: 048
     Dates: start: 20100518, end: 20110106
  3. DEXAMETHASONE [Suspect]
     Indication: MULTIPLE MYELOMA
     Dosage: 2 Milligram
     Route: 048
     Dates: start: 20100218, end: 20100503
  4. DEXAMETHASONE [Suspect]
     Dosage: 2 Milligram
     Route: 048
  5. COREG [Concomitant]
     Indication: HYPERTENSION
     Dosage: 12.5 Milligram
     Route: 048
     Dates: start: 20091201
  6. LISINOPRIL [Concomitant]
     Indication: HYPERTENSION
     Dosage: 40 Milligram
     Route: 048
     Dates: start: 20091201
  7. COUMADIN [Concomitant]
     Indication: DRUG USE FOR UNKNOWN INDICATION
     Route: 065
  8. PLAVIX [Concomitant]
     Indication: DRUG USE FOR UNKNOWN INDICATION
     Route: 065

REACTIONS (4)
  - Gastrointestinal arteriovenous malformation [Not Recovered/Not Resolved]
  - Pneumonia [Recovered/Resolved]
  - Hypertension [Recovered/Resolved]
  - Dizziness [Recovered/Resolved]
